FAERS Safety Report 4303195-3 (Version None)
Quarter: 2004Q1

REPORT INFORMATION
  Report Type: 
  Country: None (occurrence: None)
  Receive Date: 20040126
  Receipt Date: 20031013
  Transmission Date: 20041129
  Serious: No
  Sender: FDA-Public Use
  Company Number: USA030948407

PATIENT
  Age: 50 Year
  Sex: Female

DRUGS (4)
  1. STRATTERA [Suspect]
     Indication: DISTURBANCE IN ATTENTION
     Dosage: 80 MG/DAY
     Dates: start: 20030801
  2. SYNTHROID [Concomitant]
  3. ZYRTEC-D 12 HOUR [Concomitant]
  4. ALEVE [Concomitant]

REACTIONS (1)
  - VISUAL DISTURBANCE [None]
